FAERS Safety Report 5443670-1 (Version None)
Quarter: 2007Q3

REPORT INFORMATION
  Report Type: 
  Country: None (occurrence: None)
  Receive Date: 20070905
  Receipt Date: 20070830
  Transmission Date: 20080115
  Serious: Yes (Hospitalization)
  Sender: FDA-Public Use
  Company Number: HQWYE522318JUN04

PATIENT
  Age: 77 Year
  Sex: Male

DRUGS (1)
  1. CORDARONE [Suspect]
     Indication: HYPERURICAEMIA
     Route: 048
     Dates: start: 20030606, end: 20040121

REACTIONS (3)
  - HYPOTHYROIDISM [None]
  - POLYNEUROPATHY [None]
  - WATER INTOXICATION [None]
